FAERS Safety Report 9751660 (Version 2)
Quarter: 2014Q1

REPORT INFORMATION
  Report Type: Spontaneous
  Country: JP (occurrence: JP)
  Receive Date: 20131212
  Receipt Date: 20140212
  Transmission Date: 20141002
  Serious: Yes (Disabling)
  Sender: FDA-Public Use
  Company Number: JP-ROCHE-1314658

PATIENT
  Age: 66 Year
  Sex: Male
  Weight: 68 kg

DRUGS (5)
  1. AVASTIN [Suspect]
     Indication: RECTAL CANCER METASTATIC
     Dosage: DOSAGE IS UNCERTAIN.
     Route: 041
     Dates: start: 20111108, end: 20130304
  2. ELPLAT [Suspect]
     Indication: RECTAL CANCER METASTATIC
     Dosage: DOSAGE IS UNCERTAIN.
     Route: 041
     Dates: start: 20111108, end: 20130304
  3. 5-FU [Suspect]
     Indication: RECTAL CANCER METASTATIC
     Dosage: DOSAGE IS UNCERTAIN.
     Route: 040
     Dates: start: 20111108, end: 20130304
  4. 5-FU [Suspect]
     Indication: RECTAL CANCER METASTATIC
     Dosage: DOSAGE IS UNCERTAIN.
     Route: 041
     Dates: start: 20111108, end: 20130304
  5. CALCIUM LEVOFOLINATE [Suspect]
     Indication: RECTAL CANCER METASTATIC
     Dosage: DOSAGE IS UNCERTAIN.
     Route: 041
     Dates: start: 20111108, end: 20130304

REACTIONS (3)
  - Bone marrow failure [Recovered/Resolved]
  - Malaise [Recovered/Resolved]
  - Wound dehiscence [Recovered/Resolved]
